FAERS Safety Report 20620143 (Version 2)
Quarter: 2022Q2

REPORT INFORMATION
  Report Type: Spontaneous
  Country: DE (occurrence: DE)
  Receive Date: 20220322
  Receipt Date: 20220418
  Transmission Date: 20220721
  Serious: Yes (Life-Threatening, Hospitalization, Other)
  Sender: FDA-Public Use
  Company Number: DE-GLAXOSMITHKLINE-DE2021EME121704

PATIENT
  Age: 11 Month
  Sex: Female
  Weight: 8.8 kg

DRUGS (2)
  1. KEPPRA [Suspect]
     Active Substance: LEVETIRACETAM
     Indication: Seizure
     Dosage: 150 MILLIGRAM, 2X/DAY (BID)
  2. PRIORIX-TETRA [Suspect]
     Active Substance: MEASLES-MUMPS-RUBELLA-VARICELLA VIRUS VACCINE, LIVE
     Indication: Prophylaxis
     Dosage: UNK
     Route: 030
     Dates: start: 20180418

REACTIONS (41)
  - Respiratory arrest [Unknown]
  - Seizure [Recovered/Resolved]
  - Eye movement disorder [Unknown]
  - Dyspnoea [Unknown]
  - Abnormal behaviour [Unknown]
  - Idiopathic generalised epilepsy [Unknown]
  - Initial insomnia [Unknown]
  - Fall [Unknown]
  - Fatigue [Unknown]
  - Cyanosis [Recovered/Resolved]
  - Musculoskeletal stiffness [Unknown]
  - Unresponsive to stimuli [Recovered/Resolved]
  - Body temperature increased [Unknown]
  - Developmental delay [Unknown]
  - Gaze palsy [Unknown]
  - Psychomotor hyperactivity [Unknown]
  - Epilepsy [Unknown]
  - Muscle spasms [Unknown]
  - Febrile convulsion [Unknown]
  - Altered state of consciousness [Unknown]
  - Eye naevus [Unknown]
  - Tonsillitis [Unknown]
  - Bruxism [Unknown]
  - Pyrexia [Unknown]
  - Loss of consciousness [Unknown]
  - Tonic convulsion [Unknown]
  - Circulatory collapse [Unknown]
  - Sleep disorder [Unknown]
  - Generalised tonic-clonic seizure [Unknown]
  - Tardive dyskinesia [Unknown]
  - Vomiting [Recovered/Resolved]
  - Tonsillar erythema [Unknown]
  - Aggression [Unknown]
  - Nasal congestion [Unknown]
  - Tonsillar hypertrophy [Unknown]
  - Restlessness [Unknown]
  - Neurogenic bowel [Unknown]
  - Erythema [Unknown]
  - Pharyngeal erythema [Unknown]
  - Underdose [Unknown]
  - Product use issue [Unknown]

NARRATIVE: CASE EVENT DATE: 20180429
